FAERS Safety Report 11672334 (Version 2)
Quarter: 2015Q4

REPORT INFORMATION
  Report Type: Report from Study
  Country: DE (occurrence: DE)
  Receive Date: 20151028
  Receipt Date: 20151105
  Transmission Date: 20160304
  Serious: Yes (Other)
  Sender: FDA-Public Use
  Company Number: DE-BEH-2015054545

PATIENT
  Age: 70 Year
  Sex: Male
  Weight: 75 kg

DRUGS (18)
  1. METROPROLOL [Concomitant]
     Active Substance: METOPROLOL
  2. PRIVIGEN [Suspect]
     Active Substance: HUMAN IMMUNOGLOBULIN G
     Dosage: INFUSION RATE MIN. 2 ML/MIN - MAX. 3 ML/MIN
     Route: 042
     Dates: start: 20141218, end: 20141218
  3. PRIVIGEN [Suspect]
     Active Substance: HUMAN IMMUNOGLOBULIN G
     Dosage: INFUSION RATE MIN. 2 ML/MIN - MAX. 3 ML/MIN
     Route: 042
     Dates: start: 20150223, end: 20150223
  4. CARBAMAZEPIN [Concomitant]
     Active Substance: CARBAMAZEPINE
  5. SIMVASTATIN. [Concomitant]
     Active Substance: SIMVASTATIN
  6. OXYCODON [Concomitant]
     Active Substance: OXYCODONE
  7. TORASEMIDE [Concomitant]
     Active Substance: TORSEMIDE
  8. IBU [Concomitant]
     Active Substance: IBUPROFEN
  9. ASPIRIN PROTECT [Concomitant]
     Active Substance: ASPIRIN
  10. PRIVIGEN [Suspect]
     Active Substance: HUMAN IMMUNOGLOBULIN G
     Dosage: INFUSION RATE MIN. 2 ML/MIN - MAX. 3 ML/MIN
     Route: 042
     Dates: start: 20141127, end: 20141127
  11. PRIVIGEN [Suspect]
     Active Substance: HUMAN IMMUNOGLOBULIN G
     Dosage: INFUSION RATE MIN. 0.76 ML/MIN - MAX. 0.8 ML/MIN
     Route: 042
     Dates: start: 20150319, end: 20150319
  12. CYMBALTA [Concomitant]
     Active Substance: DULOXETINE HYDROCHLORIDE
  13. AMIODARON [Concomitant]
     Active Substance: AMIODARONE
  14. MOVICOL [Concomitant]
     Active Substance: POLYETHYLENE GLYCOL 3350\POTASSIUM CHLORIDE\SODIUM BICARBONATE\SODIUM CHLORIDE
  15. PRIVIGEN [Suspect]
     Active Substance: HUMAN IMMUNOGLOBULIN G
     Indication: IMMUNODEFICIENCY
     Dosage: INFUSION RATE MIN. 2 ML/MIN - MAX. 3 ML/MIN
     Route: 042
     Dates: start: 20150115, end: 20150115
  16. LYRICA [Concomitant]
     Active Substance: PREGABALIN
  17. PANTOZOL [Concomitant]
     Active Substance: PANTOPRAZOLE SODIUM
  18. CALCIUM [Concomitant]
     Active Substance: CALCIUM

REACTIONS (2)
  - Prostate cancer [Unknown]
  - General physical health deterioration [Unknown]
